FAERS Safety Report 23105571 (Version 1)
Quarter: 2023Q4

REPORT INFORMATION
  Report Type: Spontaneous
  Country: FR (occurrence: FR)
  Receive Date: 20231025
  Receipt Date: 20231025
  Transmission Date: 20240110
  Serious: Yes (Other)
  Sender: FDA-Public Use
  Company Number: None

PATIENT
  Age: 61 Year
  Sex: Female
  Weight: 83.5 kg

DRUGS (4)
  1. PROPOFOL [Suspect]
     Active Substance: PROPOFOL
     Indication: Bronchospasm
     Dosage: UNK
     Route: 042
     Dates: start: 20230915, end: 20230915
  2. ALBUTEROL [Suspect]
     Active Substance: ALBUTEROL
     Indication: Bronchospasm
     Dosage: UNK
     Route: 042
     Dates: start: 20230915, end: 20230915
  3. SUFENTANIL [Suspect]
     Active Substance: SUFENTANIL
     Indication: Bronchospasm
     Dosage: UNK
     Route: 042
     Dates: start: 20230915, end: 20230915
  4. SEVOFLURANE [Suspect]
     Active Substance: SEVOFLURANE
     Indication: Bronchospasm
     Dosage: UNK
     Route: 055
     Dates: start: 20230915, end: 20230915

REACTIONS (1)
  - Hypotension [Recovered/Resolved]

NARRATIVE: CASE EVENT DATE: 20230915
